FAERS Safety Report 13599936 (Version 4)
Quarter: 2017Q3

REPORT INFORMATION
  Report Type: Spontaneous
  Country: JP (occurrence: JP)
  Receive Date: 20170601
  Receipt Date: 20170703
  Transmission Date: 20171127
  Serious: Yes (Hospitalization)
  Sender: FDA-Public Use
  Company Number: JP-BRISTOL-MYERS SQUIBB COMPANY-BMS-2017-041225

PATIENT
  Age: 70 Year
  Sex: Female
  Weight: 48.2 kg

DRUGS (3)
  1. OPDIVO [Suspect]
     Active Substance: NIVOLUMAB
     Indication: MALIGNANT MELANOMA
     Dosage: 3 MG/KG, UNK
     Route: 065
     Dates: start: 20160920, end: 20170220
  2. YERVOY [Suspect]
     Active Substance: IPILIMUMAB
     Indication: MALIGNANT MELANOMA
     Dosage: 50 MG, UNK
     Route: 041
  3. MERCAZOLE                          /00022901/ [Suspect]
     Active Substance: METHIMAZOLE
     Indication: MALIGNANT MELANOMA
     Dosage: UNK
     Route: 065
     Dates: start: 20170116

REACTIONS (4)
  - Pruritus [Unknown]
  - Hepatic function abnormal [Recovered/Resolved]
  - Thyroid function test abnormal [Unknown]
  - Faeces soft [Unknown]

NARRATIVE: CASE EVENT DATE: 20161024
